FAERS Safety Report 16667868 (Version 1)
Quarter: 2019Q3

REPORT INFORMATION
  Report Type: Spontaneous
  Country: US (occurrence: US)
  Receive Date: 20190620
  Receipt Date: 20190620
  Transmission Date: 20191004
  Serious: No
  Sender: FDA-Public Use
  Company Number: None

PATIENT
  Sex: Female

DRUGS (1)
  1. REPATHA [Suspect]
     Active Substance: EVOLOCUMAB
     Indication: HYPERCHOLESTEROLAEMIA
     Dosage: ?          OTHER FREQUENCY:EVERY 2 WEEKS ;?
     Route: 058
     Dates: start: 20190403

REACTIONS (8)
  - Fatigue [None]
  - Cough [None]
  - Nasal dryness [None]
  - Depression [None]
  - Crying [None]
  - Influenza like illness [None]
  - Dry mouth [None]
  - Pain [None]
